FAERS Safety Report 6387965-6 (Version None)
Quarter: 2009Q3

REPORT INFORMATION
  Report Type: 
  Country: None (occurrence: None)
  Receive Date: 20090930
  Receipt Date: 20090915
  Transmission Date: 20100115
  Serious: Yes (Other)
  Sender: FDA-Public Use
  Company Number: PHHY2009CN39599

PATIENT
  Age: 40 Year
  Sex: Male

DRUGS (2)
  1. VISUDYNE [Suspect]
     Indication: CHORIORETINOPATHY
     Dosage: 4.2 MG/M^2 ONCE IV
     Route: 042
  2. FLUORESCITE [Concomitant]

REACTIONS (1)
  - MACULAR DEGENERATION [None]
